FAERS Safety Report 8793074 (Version 2)
Quarter: 2015Q1

REPORT INFORMATION
  Report Type: Report from Study
  Country: US (occurrence: US)
  Receive Date: 20120918
  Receipt Date: 20150312
  Transmission Date: 20150721
  Serious: Yes (Death)
  Sender: FDA-Public Use
  Company Number: US-ROCHE-1124252

PATIENT
  Sex: Female

DRUGS (9)
  1. CISPLATIN. [Concomitant]
     Active Substance: CISPLATIN
     Route: 065
  2. ALIMTA [Concomitant]
     Active Substance: PEMETREXED DISODIUM
     Route: 065
  3. MANNITOL. [Concomitant]
     Active Substance: MANNITOL
  4. EMEND [Concomitant]
     Active Substance: APREPITANT
     Route: 065
  5. ALOXI [Concomitant]
     Active Substance: PALONOSETRON HYDROCHLORIDE
     Route: 065
  6. MORPHINE [Concomitant]
     Active Substance: MORPHINE
     Route: 065
  7. AVASTIN [Suspect]
     Active Substance: BEVACIZUMAB
     Indication: LUNG NEOPLASM MALIGNANT
     Route: 042
  8. POTASSIUM CHLORIDE. [Concomitant]
     Active Substance: POTASSIUM CHLORIDE
     Route: 065
  9. DEXAMETHASONE. [Concomitant]
     Active Substance: DEXAMETHASONE
     Route: 065

REACTIONS (2)
  - Abdominal pain [Unknown]
  - Death [Fatal]
